FAERS Safety Report 5404682-7 (Version None)
Quarter: 2007Q3

REPORT INFORMATION
  Report Type: 
  Country: None (occurrence: None)
  Receive Date: 20070731
  Receipt Date: 20070725
  Transmission Date: 20080115
  Serious: Yes (Death, Other)
  Sender: FDA-Public Use
  Company Number: 056-C5013-06101055

PATIENT
  Age: 58 Year
  Sex: Female

DRUGS (5)
  1. CC-5013 (LENALIDOMIDE) (CAPSULES) [Suspect]
     Indication: MULTIPLE MYELOMA
     Dosage: 25 MG, 1 IN 1 D, ORAL
     Route: 048
     Dates: start: 20060420, end: 20060514
  2. DEXAMETHASONE TAB [Concomitant]
  3. FLUCONAZOLE [Concomitant]
  4. MORPHINE SULFATE INJ [Concomitant]
  5. ACTTSKENAN (MORPHINE) [Concomitant]

REACTIONS (9)
  - ACUTE PULMONARY OEDEMA [None]
  - CANDIDA SEPSIS [None]
  - COMA [None]
  - HYPERCALCAEMIA [None]
  - LUNG DISORDER [None]
  - MULTI-ORGAN FAILURE [None]
  - OSTEITIS [None]
  - PANCYTOPENIA [None]
  - RENAL FAILURE [None]
